FAERS Safety Report 24724033 (Version 1)
Quarter: 2024Q4

REPORT INFORMATION
  Report Type: Report from Study
  Country: US (occurrence: US)
  Receive Date: 20241211
  Receipt Date: 20241211
  Transmission Date: 20250115
  Serious: Yes (Hospitalization)
  Sender: ABBVIE
  Company Number: US-ABBVIE-6040417

PATIENT
  Sex: Female

DRUGS (2)
  1. VENCLEXTA [Suspect]
     Active Substance: VENETOCLAX
     Indication: Acute myeloid leukaemia
     Route: 048
  2. XOSPATA [Concomitant]
     Active Substance: GILTERITINIB
     Indication: Acute myeloid leukaemia

REACTIONS (1)
  - Laboratory test abnormal [Not Recovered/Not Resolved]
